FAERS Safety Report 16808375 (Version 2)
Quarter: 2019Q3

REPORT INFORMATION
  Report Type: Spontaneous
  Country: CA (occurrence: CA)
  Receive Date: 20190916
  Receipt Date: 20190930
  Transmission Date: 20191005
  Serious: Yes (Other)
  Sender: FDA-Public Use
  Company Number: CA-AUROBINDO-AUR-APL-2019-060449

PATIENT
  Age: 39 Year
  Sex: Female
  Weight: 81 kg

DRUGS (1)
  1. AURO-LAMOTRIGINE TABLET [Suspect]
     Active Substance: LAMOTRIGINE
     Indication: AFFECTIVE DISORDER
     Dosage: 150 MILLIGRAM, TWO TIMES A DAY
     Route: 048

REACTIONS (4)
  - Withdrawal syndrome [Recovering/Resolving]
  - Palpitations [Recovering/Resolving]
  - Nausea [Recovering/Resolving]
  - Therapeutic response shortened [Recovering/Resolving]
